FAERS Safety Report 23191318 (Version 1)
Quarter: 2023Q4

REPORT INFORMATION
  Report Type: Spontaneous
  Country: DE (occurrence: DE)
  Receive Date: 20231116
  Receipt Date: 20231116
  Transmission Date: 20240110
  Serious: Yes (Other)
  Sender: FDA-Public Use
  Company Number: DE-EMA-DD-20230728-7180171-121959

PATIENT

DRUGS (19)
  1. LENALIDOMIDE [Suspect]
     Active Substance: LENALIDOMIDE
     Indication: Plasma cell myeloma refractory
     Dosage: UNK UNK, UNKNOWN FREQ. (AS A PART OF SECOND LINE TREATMENT)
     Route: 065
     Dates: start: 20150101, end: 20171001
  2. DOXORUBICIN HYDROCHLORIDE [Suspect]
     Active Substance: DOXORUBICIN HYDROCHLORIDE
     Indication: Plasma cell myeloma refractory
     Dosage: UNK UNK, UNKNOWN FREQ. (AS A PART OF FIRST LINE TREATMENT)
     Route: 065
     Dates: start: 20140301, end: 20141101
  3. POMALIDOMIDE [Suspect]
     Active Substance: POMALIDOMIDE
     Indication: Plasma cell myeloma refractory
     Dosage: (AS A PART OF FOURTH LINE TREATMENT)
     Route: 065
     Dates: start: 20180901, end: 20190901
  4. POMALIDOMIDE [Suspect]
     Active Substance: POMALIDOMIDE
     Dosage: UNK UNK, UNKNOWN FREQ. (AS A PART OF FOURTH LINE TREATMENT)
     Route: 065
     Dates: start: 20200701, end: 20210101
  5. BENDAMUSTINE HYDROCHLORIDE [Suspect]
     Active Substance: BENDAMUSTINE HYDROCHLORIDE
     Indication: Plasma cell myeloma refractory
     Dosage: (AS A PART OF MOST RECENT LINE TREATMENT)
     Route: 065
     Dates: start: 20220801, end: 20230620
  6. CYCLOPHOSPHAMIDE [Suspect]
     Active Substance: CYCLOPHOSPHAMIDE
     Indication: Plasma cell myeloma refractory
     Dosage: UNK UNK, UNKNOWN FREQ. (AS A PART OF FOURTH LINE TREATMENT)
     Route: 065
     Dates: start: 20180901, end: 20190901
  7. DARATUMUMAB [Suspect]
     Active Substance: DARATUMUMAB
     Indication: Plasma cell myeloma refractory
     Dosage: UNK UNK, UNKNOWN FREQ. (AS A PART OF THIRD LINE TREATMENT)
     Route: 065
     Dates: start: 20171001, end: 20180801
  8. DEXAMETHASONE [Suspect]
     Active Substance: DEXAMETHASONE
     Indication: Plasma cell myeloma refractory
     Dosage: UNK UNK, UNKNOWN FREQ. (AS A PART OF FIFTH LINE TREATMENT)
     Route: 065
     Dates: start: 20200701, end: 20210101
  9. DEXAMETHASONE [Suspect]
     Active Substance: DEXAMETHASONE
     Dosage: UNK UNK, UNKNOWN FREQ. (AS A PART OF SECOND LINE TREATMENT)
     Route: 065
     Dates: start: 20150101, end: 20171001
  10. DEXAMETHASONE [Suspect]
     Active Substance: DEXAMETHASONE
     Dosage: UNK UNK, UNKNOWN FREQ. (AS A PART OF FIRST LINE TREATMENT)
     Route: 065
     Dates: start: 20140301, end: 20141101
  11. DEXAMETHASONE [Suspect]
     Active Substance: DEXAMETHASONE
     Dosage: UNK UNK, UNKNOWN FREQ. (AS A PART OF THIRD LINE TREATMENT)
     Route: 065
     Dates: start: 20171001, end: 20180801
  12. DEXAMETHASONE [Suspect]
     Active Substance: DEXAMETHASONE
     Dosage: UNK UNK, UNKNOWN FREQ. (AS A PART OF SIXTH LINE TREATMENT)
     Route: 065
     Dates: start: 20210101, end: 20220501
  13. DEXAMETHASONE [Suspect]
     Active Substance: DEXAMETHASONE
     Dosage: UNK UNK, UNKNOWN FREQ. (AS A PART OF FOURTH LINE TREATMENT)
     Route: 065
     Dates: start: 20180901, end: 20190901
  14. CARFILZOMIB [Concomitant]
     Active Substance: CARFILZOMIB
     Indication: Plasma cell myeloma refractory
     Dosage: (AS A PART OF SIXTH LINE TREATMENT)
     Route: 065
     Dates: start: 20210101, end: 20220501
  15. BLENREP [Concomitant]
     Active Substance: BELANTAMAB MAFODOTIN-BLMF
     Indication: Malignant neoplasm progression
     Dosage: UNK
     Route: 065
  16. BLENREP [Concomitant]
     Active Substance: BELANTAMAB MAFODOTIN-BLMF
     Indication: Plasma cell myeloma refractory
     Dosage: (05-AUG-202)
     Route: 065
  17. ELOTUZUMAB [Concomitant]
     Active Substance: ELOTUZUMAB
     Indication: Plasma cell myeloma refractory
     Dosage: UNK UNK, UNKNOWN FREQ. (AS A PART OF FIFTH LINE TREATMENT)
     Route: 065
     Dates: start: 20200701, end: 20210101
  18. BORTEZOMIB [Concomitant]
     Active Substance: BORTEZOMIB
     Indication: Plasma cell myeloma refractory
     Dosage: UNK UNK, UNKNOWN FREQ. (AS A PART OF THIRD LINE TREATMENT)
     Route: 065
     Dates: start: 20171001, end: 20180801
  19. BORTEZOMIB [Concomitant]
     Active Substance: BORTEZOMIB
     Dosage: UNK UNK, UNKNOWN FREQ. (AS A PART OF FIRST LINE TREATMENT)
     Route: 065
     Dates: start: 20140301, end: 20141101

REACTIONS (1)
  - Malignant neoplasm progression [Unknown]
